FAERS Safety Report 14856132 (Version 2)
Quarter: 2018Q2

REPORT INFORMATION
  Report Type: Spontaneous
  Country: US (occurrence: US)
  Receive Date: 20180507
  Receipt Date: 20180511
  Transmission Date: 20180711
  Serious: Yes (Hospitalization, Other)
  Sender: FDA-Public Use
  Company Number: US-BAUSCH-BL-2018-013234

PATIENT
  Sex: Male

DRUGS (1)
  1. UCERIS [Suspect]
     Active Substance: BUDESONIDE
     Indication: COLITIS ULCERATIVE
     Route: 065

REACTIONS (7)
  - Disease progression [Unknown]
  - Haemorrhage [Unknown]
  - Asthenia [Unknown]
  - Unevaluable event [Unknown]
  - Colitis ulcerative [Unknown]
  - Dehydration [Unknown]
  - Insurance issue [Unknown]
